FAERS Safety Report 10989202 (Version 1)
Quarter: 2015Q2

REPORT INFORMATION
  Report Type: Spontaneous
  Country: US (occurrence: US)
  Receive Date: 20150406
  Receipt Date: 20150406
  Transmission Date: 20150821
  Serious: Yes (Hospitalization)
  Sender: FDA-Public Use
  Company Number: US-AUROBINDO-AUR-APL-2015-02863

PATIENT
  Sex: Female
  Weight: 61 kg

DRUGS (5)
  1. WARFARIN [Suspect]
     Active Substance: WARFARIN
     Indication: PRODUCT USED FOR UNKNOWN INDICATION
     Dosage: 1 MG, DAILY
     Route: 065
  2. METOPROLOL 25MG [Suspect]
     Active Substance: METOPROLOL
     Indication: PRODUCT USED FOR UNKNOWN INDICATION
     Dosage: 25 MG, TWO TIMES A DAY
     Route: 065
  3. METFORMIN [Suspect]
     Active Substance: METFORMIN HYDROCHLORIDE
     Indication: PRODUCT USED FOR UNKNOWN INDICATION
     Dosage: 500 MG, TWO TIMES A DAY
     Route: 065
  4. CARTIA XT [Suspect]
     Active Substance: DILTIAZEM HYDROCHLORIDE
     Indication: PRODUCT USED FOR UNKNOWN INDICATION
     Dosage: 180 24 HR CAPSULE
     Route: 065
  5. REVATIO [Suspect]
     Active Substance: SILDENAFIL CITRATE
     Indication: HEART RATE IRREGULAR
     Dosage: 20 MG, ONCE A DAY
     Route: 065

REACTIONS (4)
  - Drug dose omission [Recovered/Resolved]
  - Medication error [Recovered/Resolved]
  - Dizziness [Recovered/Resolved]
  - Thinking abnormal [Recovered/Resolved]
